FAERS Safety Report 5036035-8 (Version None)
Quarter: 2006Q2

REPORT INFORMATION
  Report Type: 
  Country: None (occurrence: None)
  Receive Date: 20060601
  Receipt Date: 20060425
  Transmission Date: 20061013
  Serious: Yes (Other)
  Sender: FDA-Public Use
  Company Number: US200604004007

PATIENT
  Age: 47 Year
  Sex: Female

DRUGS (2)
  1. CYMBALTA [Suspect]
     Dosage: 120 MG
  2. THYROID PREPARATIONS [Concomitant]

REACTIONS (4)
  - DYSPNOEA [None]
  - MEDICATION ERROR [None]
  - SEROTONIN SYNDROME [None]
  - SWOLLEN TONGUE [None]
